FAERS Safety Report 9770268 (Version 1)
Quarter: 2013Q4

REPORT INFORMATION
  Report Type: Spontaneous
  Country: US (occurrence: US)
  Receive Date: 20131218
  Receipt Date: 20131218
  Transmission Date: 20140711
  Serious: Yes (Hospitalization)
  Sender: FDA-Public Use
  Company Number: US-GLAXOSMITHKLINE-A1053951A

PATIENT
  Age: 43 Year
  Sex: Female

DRUGS (1)
  1. BENLYSTA [Suspect]
     Indication: SYSTEMIC LUPUS ERYTHEMATOSUS
     Route: 042
     Dates: start: 201209

REACTIONS (9)
  - Pulmonary embolism [Unknown]
  - Abasia [Unknown]
  - Systemic lupus erythematosus [Unknown]
  - Thrombosis [Unknown]
  - Muscle spasms [Unknown]
  - Pyrexia [Unknown]
  - Pain [Unknown]
  - Weight increased [Unknown]
  - Dyspnoea [Unknown]
